FAERS Safety Report 7750334-8 (Version None)
Quarter: 2011Q3

REPORT INFORMATION
  Report Type: 
  Country: None (occurrence: None)
  Receive Date: 20110914
  Receipt Date: 20110912
  Transmission Date: 20111222
  Serious: Yes (Death, Other)
  Sender: FDA-Public Use
  Company Number: VE-PFIZER INC-2011208035

PATIENT
  Age: 89 Year
  Sex: Female

DRUGS (1)
  1. LIPITOR [Suspect]
     Dosage: UNK

REACTIONS (5)
  - FEMUR FRACTURE [None]
  - RESPIRATORY ARREST [None]
  - PNEUMONIA [None]
  - FALL [None]
  - LOWER LIMB FRACTURE [None]
